FAERS Safety Report 8836411 (Version 2)
Quarter: 2012Q4

REPORT INFORMATION
  Report Type: 
  Country: US (occurrence: US)
  Receive Date: 20121011
  Receipt Date: 20121025
  Transmission Date: 20130627
  Serious: Yes (Hospitalization)
  Sender: FDA-Public Use
  Company Number: US-009507513-1209USA011659

PATIENT
  Age: 32 Year
  Sex: Female

DRUGS (1)
  1. MK-7535 [Suspect]
     Indication: NEUROMYELITIS OPTICA
     Dosage: 1g / day over 4h

REACTIONS (1)
  - Psychotic disorder [Unknown]
